FAERS Safety Report 7090280-9 (Version None)
Quarter: 2010Q4

REPORT INFORMATION
  Report Type: 
  Country: None (occurrence: None)
  Receive Date: 20101109
  Receipt Date: 20101103
  Transmission Date: 20110411
  Serious: Yes (Death, Other)
  Sender: FDA-Public Use
  Company Number: ES-CELGENEUS-144-50794-10110434

PATIENT

DRUGS (3)
  1. VIDAZA [Suspect]
     Route: 058
  2. VIDAZA [Suspect]
  3. VIDAZA [Suspect]

REACTIONS (8)
  - ACUTE MYELOID LEUKAEMIA [None]
  - DEATH [None]
  - DISEASE PROGRESSION [None]
  - GENERAL PHYSICAL HEALTH DETERIORATION [None]
  - HAEMATOTOXICITY [None]
  - MYELODYSPLASTIC SYNDROME TRANSFORMATION [None]
  - NEPHROPATHY TOXIC [None]
  - NO THERAPEUTIC RESPONSE [None]
